FAERS Safety Report 6245916-9 (Version None)
Quarter: 2009Q2

REPORT INFORMATION
  Report Type: 
  Country: None (occurrence: None)
  Receive Date: 20090626
  Receipt Date: 20080825
  Transmission Date: 20091009
  Serious: No
  Sender: FDA-Public Use
  Company Number: A0737234A

PATIENT
  Age: 51 Year
  Sex: Female

DRUGS (3)
  1. IMITREX [Suspect]
     Indication: MIGRAINE
     Dosage: 50MG AS REQUIRED
     Route: 048
     Dates: start: 20070401
  2. TOPAMAX [Concomitant]
  3. SPIRONOLACTONE [Concomitant]

REACTIONS (2)
  - DRUG INEFFECTIVE [None]
  - PRODUCT QUALITY ISSUE [None]
